FAERS Safety Report 13032895 (Version 1)
Quarter: 2016Q4

REPORT INFORMATION
  Report Type: Spontaneous
  Country: US (occurrence: US)
  Receive Date: 20161215
  Receipt Date: 20161215
  Transmission Date: 20170207
  Serious: No
  Sender: FDA-Public Use
  Company Number: US-BION-20160453

PATIENT
  Age: 51 Year
  Sex: Female

DRUGS (5)
  1. ESTROGEN/TESTOSTERONE PELLETS [Concomitant]
  2. LEVOTHYROXINE. [Concomitant]
     Active Substance: LEVOTHYROXINE
  3. VITAMINS MULTI [Concomitant]
     Active Substance: VITAMINS
  4. VITAMIN B COMPLEX [Concomitant]
     Active Substance: CYANOCOBALAMIN\DEXPANTHENOL\NIACINAMIDE\PYRIDOXINE HYDROCHLORIDE\RIBOFLAVIN 5^-PHOSPHATE SODIUM\THIAMINE HYDROCHLORIDE\VITAMIN B COMPLEX
  5. PROGESTERONE. [Suspect]
     Active Substance: PROGESTERONE
     Indication: MENOPAUSE
     Dates: start: 20160816, end: 20160822

REACTIONS (5)
  - Dizziness [Recovered/Resolved]
  - Presyncope [None]
  - Head discomfort [Recovered/Resolved]
  - Wrong technique in product usage process [Unknown]
  - Product use issue [None]
